FAERS Safety Report 15288809 (Version 3)
Quarter: 2019Q3

REPORT INFORMATION
  Report Type: Spontaneous
  Country: DE (occurrence: DE)
  Receive Date: 20180817
  Receipt Date: 20190715
  Transmission Date: 20191004
  Serious: Yes (Life-Threatening)
  Sender: FDA-Public Use
  Company Number: PHHY2000DE004094

PATIENT
  Age: 75 Year
  Sex: Female
  Weight: 69 kg

DRUGS (81)
  1. VESDIL [Suspect]
     Active Substance: RAMIPRIL
     Indication: HYPERTENSION
     Dosage: 2.5 MG,QD
     Route: 048
     Dates: start: 19981110, end: 19981208
  2. BEPANTHEN (DEXPANTHENOL) [Suspect]
     Active Substance: DEXPANTHENOL
     Dosage: 3 DF,QD
     Route: 048
     Dates: start: 19981207
  3. DORMICUM (MIDAZOLAM HYDROCHLORIDE) [Suspect]
     Active Substance: MIDAZOLAM HYDROCHLORIDE
     Indication: SEDATION
     Dosage: 40 MG, QD
     Route: 042
     Dates: start: 19981120, end: 19981120
  4. INSULIN HUMAN [Concomitant]
     Active Substance: INSULIN HUMAN
     Dosage: 8 IU, QD
     Route: 058
     Dates: start: 19981120, end: 19981120
  5. ADALAT [Concomitant]
     Active Substance: NIFEDIPINE
  6. GASTROZEPIN [Concomitant]
     Active Substance: PIRENZEPINE HYDROCHLORIDE
     Dosage: 2 DF, QD
     Route: 042
     Dates: start: 19981120, end: 19981120
  7. GASTROZEPIN [Concomitant]
     Active Substance: PIRENZEPINE HYDROCHLORIDE
  8. RANITIDINE HYDROCHLORIDE. [Concomitant]
     Active Substance: RANITIDINE HYDROCHLORIDE
     Indication: ULCER
     Dosage: UNK
     Route: 065
     Dates: start: 19981116, end: 19981119
  9. FENTANYL JANSSEN [Concomitant]
     Active Substance: FENTANYL
     Indication: GENERAL ANAESTHESIA
     Dosage: UNK
     Route: 065
     Dates: start: 19981120, end: 19981120
  10. FORTECORTIN [Concomitant]
     Active Substance: DEXAMETHASONE
     Indication: PROPHYLAXIS
     Dosage: 16 MG, QD
     Route: 042
     Dates: start: 19981120, end: 19981121
  11. PHENAEMAL [Suspect]
     Active Substance: PHENOBARBITAL
     Indication: PROPHYLAXIS
     Dosage: 0.1 MG, QD
     Route: 048
     Dates: start: 19981001, end: 19981115
  12. DIAZEPAM. [Suspect]
     Active Substance: DIAZEPAM
     Indication: SEDATION
     Dosage: 5 MG,QD
     Route: 048
     Dates: start: 19981119, end: 19981119
  13. GLUCOSE [Concomitant]
     Active Substance: DEXTROSE
  14. GLUCOSE [Concomitant]
     Active Substance: DEXTROSE
     Dosage: 500 ML, QD
     Route: 042
     Dates: start: 19981120, end: 19981122
  15. PANCURONIUM BROMIDE. [Concomitant]
     Active Substance: PANCURONIUM BROMIDE
     Indication: PRODUCT USED FOR UNKNOWN INDICATION
     Dosage: UNK
     Route: 065
     Dates: start: 19981120, end: 19981120
  16. PHENYTOIN SODIUM. [Concomitant]
     Active Substance: PHENYTOIN SODIUM
     Indication: PRODUCT USED FOR UNKNOWN INDICATION
     Dosage: UNK
     Route: 065
     Dates: start: 19981120, end: 19981120
  17. DILTIAZEM HYDROCHLORIDE. [Concomitant]
     Active Substance: DILTIAZEM HYDROCHLORIDE
     Indication: PRODUCT USED FOR UNKNOWN INDICATION
     Dosage: UNK
     Route: 065
     Dates: start: 19981110, end: 19981119
  18. SODIUM CHLORIDE. [Concomitant]
     Active Substance: SODIUM CHLORIDE
     Indication: FLUID REPLACEMENT
     Dosage: UNK
     Route: 065
     Dates: start: 19981120, end: 19981122
  19. FENTANYL JANSSEN [Concomitant]
     Active Substance: FENTANYL
     Dosage: .25 MG, QD
     Route: 042
     Dates: start: 19981120, end: 19981120
  20. DEXAMETHASONE. [Concomitant]
     Active Substance: DEXAMETHASONE
     Dosage: 8 MG, QD
     Route: 048
     Dates: start: 19981116, end: 19981128
  21. DEHYDROBENZPERIDOL [Concomitant]
     Active Substance: DROPERIDOL
     Indication: GENERAL ANAESTHESIA
     Dosage: UNK
     Route: 065
     Dates: start: 19981120, end: 19981120
  22. EBRANTIL [Concomitant]
     Active Substance: URAPIDIL
     Indication: HYPERTENSION
     Dosage: 110 MG, QD
     Route: 042
     Dates: start: 19981120, end: 19981120
  23. RINGERS SOLUTION [Concomitant]
     Active Substance: CALCIUM CHLORIDE\POTASSIUM CHLORIDE\SODIUM CHLORIDE
     Indication: PRODUCT USED FOR UNKNOWN INDICATION
     Dosage: UNK
     Route: 065
     Dates: start: 19981120, end: 19981120
  24. DEHYDROBENZPERIDOL [Concomitant]
     Active Substance: DROPERIDOL
     Dosage: 1.25 MG, QD
     Route: 042
     Dates: start: 19981120, end: 19981120
  25. PASPERTIN [Concomitant]
     Indication: NAUSEA
     Dosage: 25 GTT DROPS, QD
     Route: 048
     Dates: start: 19981119, end: 19981120
  26. ACETYLSALICYLIC ACID [Suspect]
     Active Substance: ASPIRIN
     Indication: CORONARY ARTERY DISEASE
     Dosage: 100 MG,QD
     Route: 048
     Dates: end: 19981116
  27. BEPANTHEN (DEXPANTHENOL) [Suspect]
     Active Substance: DEXPANTHENOL
     Indication: DRY MOUTH
     Dosage: 3 DF,QD
     Route: 048
     Dates: start: 19981121, end: 19981203
  28. METOCLOPRAMIDE. [Concomitant]
     Active Substance: METOCLOPRAMIDE
     Indication: PRODUCT USED FOR UNKNOWN INDICATION
     Dosage: UNK
     Route: 065
     Dates: start: 19981119, end: 19981120
  29. THIOPENTAL [Concomitant]
     Active Substance: THIOPENTAL
     Dosage: 400 MG, QD
     Route: 042
     Dates: start: 19981120, end: 19981120
  30. DOPAMINE HYDROCHLORIDE. [Concomitant]
     Active Substance: DOPAMINE HYDROCHLORIDE
     Indication: PRODUCT USED FOR UNKNOWN INDICATION
     Dosage: 200 MG, QD
     Route: 042
     Dates: start: 19981120, end: 19981120
  31. SODIUM CHLORIDE. [Concomitant]
     Active Substance: SODIUM CHLORIDE
     Dosage: 548 ML, QD
     Route: 042
     Dates: start: 19981120, end: 19981122
  32. POTASSIUM CHLORIDE. [Concomitant]
     Active Substance: POTASSIUM CHLORIDE
     Dosage: 50 ML, QD
     Route: 042
     Dates: start: 19981120, end: 19981122
  33. ISOFLURANE. [Concomitant]
     Active Substance: ISOFLURANE
     Dosage: 4 %, QD
     Route: 055
     Dates: start: 19981120, end: 19981120
  34. MIDAZOLAM [Concomitant]
     Active Substance: MIDAZOLAM HYDROCHLORIDE
     Indication: SEDATION
     Route: 065
  35. VESDIL [Suspect]
     Active Substance: RAMIPRIL
     Dosage: 2.5 MG, QD, UNK TO 19-NOV-1998
     Route: 048
  36. PHENHYDAN [Suspect]
     Active Substance: PHENYTOIN
     Indication: PROPHYLAXIS
     Dosage: 100 MG,QD
     Route: 065
     Dates: start: 19981116, end: 19981121
  37. PHENHYDAN [Suspect]
     Active Substance: PHENYTOIN
     Dosage: 100 MG,QD
     Route: 048
     Dates: start: 19981120, end: 19981120
  38. SILOMAT [CLOBUTINOL HYDROCHLORIDE] [Suspect]
     Active Substance: CLOBUTINOL HYDROCHLORIDE
     Dosage: 20 DF,QD
     Route: 048
     Dates: start: 19981128, end: 19981128
  39. SILOMAT [CLOBUTINOL HYDROCHLORIDE] [Suspect]
     Active Substance: CLOBUTINOL HYDROCHLORIDE
     Dosage: 20 DF,QD
     Route: 048
     Dates: start: 19981130, end: 19981205
  40. DORMICUM (MIDAZOLAM HYDROCHLORIDE) [Suspect]
     Active Substance: MIDAZOLAM HYDROCHLORIDE
     Indication: SEDATION
     Dosage: 7.5 MG, QD
     Route: 048
     Dates: start: 19981119, end: 19981119
  41. CODEINE [Suspect]
     Active Substance: CODEINE
     Indication: COUGH
     Dosage: 15 DF,QD
     Route: 048
     Dates: start: 19981204
  42. INSULIN HUMAN [Concomitant]
     Active Substance: INSULIN HUMAN
     Indication: HYPERGLYCAEMIA
     Dosage: UNK
     Route: 065
     Dates: start: 19981120, end: 19981120
  43. GLUCOSE [Concomitant]
     Active Substance: DEXTROSE
     Indication: FLUID REPLACEMENT
     Dosage: UNK
     Route: 065
     Dates: start: 19981120, end: 19981122
  44. SOSTRIL [Concomitant]
  45. KALINOR-BRAUSETABLETTEN [Concomitant]
     Active Substance: POTASSIUM CARBONATE\POTASSIUM CITRATE
     Indication: HYPOKALAEMIA
     Dosage: 50 ML, QD
     Route: 042
     Dates: start: 19981121, end: 19981122
  46. DEXAMETHASONE SODIUM PHOSPHATE. [Concomitant]
     Active Substance: DEXAMETHASONE SODIUM PHOSPHATE
     Indication: PRODUCT USED FOR UNKNOWN INDICATION
     Dosage: UNK
     Route: 065
     Dates: start: 19981120, end: 19981121
  47. POTASSIUM CHLORIDE. [Concomitant]
     Active Substance: POTASSIUM CHLORIDE
     Indication: HYPOKALAEMIA
     Dosage: UNK
     Route: 065
     Dates: start: 19981120, end: 19981122
  48. DEXAMETHASONE. [Concomitant]
     Active Substance: DEXAMETHASONE
     Indication: PROPHYLAXIS
     Dosage: UNK
     Route: 065
     Dates: start: 19981116, end: 19981128
  49. VESDIL [Suspect]
     Active Substance: RAMIPRIL
     Dosage: 2.5 MG, QD
     Route: 048
     Dates: start: 19981122
  50. PHENHYDAN [Suspect]
     Active Substance: PHENYTOIN
     Dosage: 100 MG,QD
     Route: 048
     Dates: start: 19981121
  51. SILOMAT [CLOBUTINOL HYDROCHLORIDE] [Suspect]
     Active Substance: CLOBUTINOL HYDROCHLORIDE
     Indication: COUGH
     Dosage: 20 DF,QD
     Route: 048
     Dates: start: 19981124, end: 19981124
  52. ADALAT [Concomitant]
     Active Substance: NIFEDIPINE
     Dosage: 1 DF, QD
     Route: 048
     Dates: start: 19981121, end: 19981121
  53. MEVINACOR [Concomitant]
     Active Substance: LOVASTATIN
     Indication: HYPERCHOLESTEROLAEMIA
     Dosage: UNK
     Route: 065
     Dates: start: 19981116, end: 19981208
  54. MEVINACOR [Concomitant]
     Active Substance: LOVASTATIN
     Dosage: .5 DF, QD
     Route: 048
     Dates: start: 19981116, end: 19981208
  55. MEVINACOR [Concomitant]
     Active Substance: LOVASTATIN
  56. RANITIDINE HYDROCHLORIDE. [Concomitant]
     Active Substance: RANITIDINE HYDROCHLORIDE
     Dosage: 300 MG, QD
     Route: 042
     Dates: start: 19981120, end: 19981121
  57. RANITIDINE HYDROCHLORIDE. [Concomitant]
     Active Substance: RANITIDINE HYDROCHLORIDE
     Dosage: 1 DF, QD
     Route: 048
     Dates: start: 19981116
  58. ARISTOCHOL KONZENTRAT [Concomitant]
     Active Substance: DIETARY SUPPLEMENT\HERBALS
     Indication: CONSTIPATION
     Dosage: UNK
     Route: 065
     Dates: start: 19981111, end: 19981207
  59. ARISTOCHOL KONZENTRAT [Concomitant]
     Active Substance: DIETARY SUPPLEMENT\HERBALS
     Dosage: 1 DF, QD
     Route: 048
     Dates: start: 19981116, end: 19981207
  60. THIOPENTAL [Concomitant]
     Active Substance: THIOPENTAL
     Indication: GENERAL ANAESTHESIA
     Dosage: UNK
     Route: 065
     Dates: start: 19981120, end: 19981120
  61. SUFENTA [Concomitant]
     Active Substance: SUFENTANIL CITRATE
     Indication: GENERAL ANAESTHESIA
     Dosage: UNK
     Route: 065
     Dates: start: 19981120, end: 19981120
  62. HEPARIN SODIUM. [Concomitant]
     Active Substance: HEPARIN SODIUM
     Indication: PRODUCT USED FOR UNKNOWN INDICATION
     Dosage: 15000 IU, UNK
     Route: 065
     Dates: start: 19981116, end: 19981208
  63. EBRANTIL [Concomitant]
     Active Substance: URAPIDIL
  64. MAGALDRATE [Suspect]
     Active Substance: MAGALDRATE
     Indication: ULCER
     Dosage: 1 DF,QD
     Route: 048
     Dates: start: 19981128
  65. METAMIZOLE SODIUM [Suspect]
     Active Substance: METAMIZOLE SODIUM
     Indication: PYREXIA
     Dosage: 20 DF,QD
     Route: 048
     Dates: start: 19981202, end: 19981202
  66. BEPANTHEN (DEXPANTHENOL) [Suspect]
     Active Substance: DEXPANTHENOL
     Dosage: 3 DF,QD
     Route: 048
     Dates: start: 19981121, end: 20181207
  67. FLUIMUCIL [Suspect]
     Active Substance: ACETYLCYSTEINE
     Indication: PRODUCT USED FOR UNKNOWN INDICATION
     Dosage: 1 DF,QD
     Route: 048
     Dates: start: 19981202
  68. NITRAZEPAM [Suspect]
     Active Substance: NITRAZEPAM
     Indication: SEDATION
     Dosage: 5 MG, QD
     Route: 048
     Dates: start: 19981119, end: 19981207
  69. GASTROZEPIN [Concomitant]
     Active Substance: PIRENZEPINE HYDROCHLORIDE
     Indication: ULCER
     Dosage: UNK
     Route: 065
     Dates: start: 19981120, end: 19981120
  70. SOSTRIL [Concomitant]
     Indication: ULCER
     Dosage: 4 ?G/L, QD
     Route: 065
     Dates: start: 19981120, end: 19981120
  71. ATROPINE SULFATE. [Concomitant]
     Active Substance: ATROPINE SULFATE
     Indication: ARRHYTHMIA
     Dosage: UNK
     Route: 065
     Dates: start: 19981120, end: 19981120
  72. ATROPINE SULFATE. [Concomitant]
     Active Substance: ATROPINE SULFATE
     Dosage: .5 MG, QD
     Route: 042
     Dates: start: 19981120, end: 19981120
  73. DILZEM [Concomitant]
     Active Substance: DILTIAZEM
     Indication: CORONARY ARTERY DISEASE
     Dosage: UNK
     Route: 048
     Dates: start: 19981110, end: 19981119
  74. ADALAT [Concomitant]
     Active Substance: NIFEDIPINE
     Indication: HYPERTENSION
     Dosage: UNK
     Route: 065
     Dates: start: 19981121, end: 19981121
  75. METOCLOPRAMIDE. [Concomitant]
     Active Substance: METOCLOPRAMIDE
  76. SUFENTA [Concomitant]
     Active Substance: SUFENTANIL CITRATE
     Dosage: 5 ML, QD
     Route: 042
     Dates: start: 19981120, end: 19981120
  77. FENTANYL JANSSEN [Concomitant]
     Active Substance: FENTANYL
     Dosage: .25 MG, QD
     Route: 042
     Dates: start: 19981120, end: 19981120
  78. ISOFLURANE. [Concomitant]
     Active Substance: ISOFLURANE
     Indication: GENERAL ANAESTHESIA
     Dosage: UNK
     Route: 055
     Dates: start: 19981120, end: 19981120
  79. ATROPINE SULFATE. [Concomitant]
     Active Substance: ATROPINE SULFATE
     Dosage: .5 MG, QD
     Route: 042
     Dates: start: 19981120, end: 19981120
  80. URAPIDIL [Concomitant]
     Active Substance: URAPIDIL
     Indication: PRODUCT USED FOR UNKNOWN INDICATION
     Dosage: UNK
     Route: 065
     Dates: start: 19981120, end: 19981120
  81. PANCURONIUM [Concomitant]
     Active Substance: PANCURONIUM
     Indication: GENERAL ANAESTHESIA
     Dosage: 6 MG, QD
     Route: 042
     Dates: start: 19981120, end: 19981120

REACTIONS (2)
  - Stevens-Johnson syndrome [Recovering/Resolving]
  - Toxic epidermal necrolysis [Recovered/Resolved]

NARRATIVE: CASE EVENT DATE: 19981207
